FAERS Safety Report 12502228 (Version 1)
Quarter: 2016Q2

REPORT INFORMATION
  Report Type: Spontaneous
  Country: HR (occurrence: HR)
  Receive Date: 20160627
  Receipt Date: 20160627
  Transmission Date: 20160815
  Serious: Yes (Other)
  Sender: FDA-Public Use
  Company Number: HR-TEVA-669219ACC

PATIENT
  Age: 67 Year
  Sex: Female
  Weight: 96 kg

DRUGS (3)
  1. OXALIPLATIN PILVA [Suspect]
     Active Substance: OXALIPLATIN
     Indication: COLON CANCER
     Dosage: 170 MILLIGRAM DAILY; INFUSION AMPOULES, VIALS/BOTTLES
     Route: 041
     Dates: start: 20160531, end: 20160531
  2. CALCIUM FOLINATE SANDOZ [Concomitant]
     Indication: COLON CANCER
     Dosage: 400 MILLIGRAM DAILY;
     Route: 041
     Dates: start: 20160531, end: 20160531
  3. FLUOROURACIL SANDOZ [Concomitant]
     Active Substance: FLUOROURACIL
     Indication: COLON CANCER
     Dosage: 800 MILLIGRAM DAILY; VIALS
     Route: 041
     Dates: start: 20160531, end: 20160531

REACTIONS (3)
  - Nasal congestion [Recovering/Resolving]
  - Paraesthesia oral [Recovering/Resolving]
  - Flushing [Recovering/Resolving]

NARRATIVE: CASE EVENT DATE: 20160531
